FAERS Safety Report 4802914-7 (Version None)
Quarter: 2005Q4

REPORT INFORMATION
  Report Type: 
  Country: None (occurrence: None)
  Receive Date: 20051019
  Receipt Date: 20041201
  Transmission Date: 20060501
  Serious: Yes (Hospitalization)
  Sender: FDA-Public Use
  Company Number: 200512967JP

PATIENT
  Age: 62 Year
  Sex: Female
  Weight: 66.1 kg

DRUGS (4)
  1. ARAVA [Suspect]
     Indication: RHEUMATOID ARTHRITIS
     Route: 048
     Dates: start: 20031204, end: 20040122
  2. RINDERON [Concomitant]
     Indication: RHEUMATOID ARTHRITIS
     Route: 048
  3. VOLTAREN [Concomitant]
     Indication: RHEUMATOID ARTHRITIS
     Route: 054
  4. NEUROTROPIN [Concomitant]
     Indication: RHEUMATOID ARTHRITIS
     Route: 051

REACTIONS (1)
  - DUODENAL ULCER [None]
